FAERS Safety Report 6477715-7 (Version None)
Quarter: 2009Q4

REPORT INFORMATION
  Report Type: 
  Country: None (occurrence: None)
  Receive Date: 20091207
  Receipt Date: 20091125
  Transmission Date: 20100525
  Serious: Yes (Hospitalization, Other)
  Sender: FDA-Public Use
  Company Number: US-PFIZER INC-2009269676

PATIENT
  Sex: Female

DRUGS (2)
  1. DETROL LA [Suspect]
     Indication: MICTURITION URGENCY
     Dosage: 2 MG, 1X/DAY
     Route: 048
     Dates: start: 20090529
  2. REBIF [Suspect]

REACTIONS (4)
  - CONTUSION [None]
  - FALL [None]
  - HAEMORRHAGE [None]
  - HYPONATRAEMIA [None]
